FAERS Safety Report 6283813-3 (Version None)
Quarter: 2009Q3

REPORT INFORMATION
  Report Type: 
  Country: None (occurrence: None)
  Receive Date: 20090724
  Receipt Date: 20090714
  Transmission Date: 20100115
  Serious: Yes (Hospitalization, Other)
  Sender: FDA-Public Use
  Company Number: US-PFIZER INC-2009242071

PATIENT
  Sex: Female

DRUGS (1)
  1. CHANTIX [Suspect]
     Indication: SMOKING CESSATION THERAPY
     Dosage: FREQUENCY: 2X/DAY, EVERY DAY;
     Route: 048
     Dates: start: 20090201, end: 20090101

REACTIONS (4)
  - ACNE [None]
  - BRONCHITIS CHRONIC [None]
  - HYPERSENSITIVITY [None]
  - PNEUMONIA [None]
